FAERS Safety Report 13209346 (Version 4)
Quarter: 2017Q2

REPORT INFORMATION
  Report Type: Report from Study
  Country: CA (occurrence: CA)
  Receive Date: 20170209
  Receipt Date: 20170606
  Transmission Date: 20170830
  Serious: Yes (Hospitalization)
  Sender: FDA-Public Use
  Company Number: CA-KADMON PHARMACEUTICALS, LLC-KAD201702-000354

PATIENT
  Age: 55 Year
  Sex: Male
  Weight: 70.5 kg

DRUGS (7)
  1. RIBAVIRIN. [Suspect]
     Active Substance: RIBAVIRIN
     Indication: CHRONIC HEPATITIS C
     Dosage: TABLET
     Route: 048
     Dates: start: 20170117
  2. LANTUS [Concomitant]
     Active Substance: INSULIN GLARGINE
  3. HUMALOG [Concomitant]
     Active Substance: INSULIN LISPRO
  4. KAYEXALATE [Suspect]
     Active Substance: SODIUM POLYSTYRENE SULFONATE
  5. COVERSYL [Concomitant]
     Active Substance: PERINDOPRIL
  6. HOLKIRA PAK [Suspect]
     Active Substance: DASABUVIR\OMBITASVIR\PARITAPREVIR\RITONAVIR
     Indication: CHRONIC HEPATITIS C
     Dosage: TABLET, 150/100/25 MG QD AND 250 MG, TWO IN 1 DAY (BID)
     Route: 048
     Dates: start: 20170117, end: 20170401
  7. RIBAVIRIN. [Suspect]
     Active Substance: RIBAVIRIN
     Route: 048
     Dates: start: 20170131, end: 20170206

REACTIONS (2)
  - Asthenia [Recovered/Resolved]
  - Hypotension [Recovering/Resolving]

NARRATIVE: CASE EVENT DATE: 20170203
